FAERS Safety Report 14584216 (Version 1)
Quarter: 2018Q1

REPORT INFORMATION
  Report Type: Spontaneous
  Country: US (occurrence: US)
  Receive Date: 20180228
  Receipt Date: 20180228
  Transmission Date: 20180509
  Serious: No
  Sender: FDA-Public Use
  Company Number: US-IRONWOOD PHARMACEUTICALS, INC.-IRWD2017004561

PATIENT
  Age: 37 Year
  Sex: Male
  Weight: 86 kg

DRUGS (1)
  1. DUZALLO [Suspect]
     Active Substance: ALLOPURINOL\LESINURAD
     Indication: GOUT
     Dosage: 200/300 MG 30 COUNT BOTTLE, DAILY (QD)
     Route: 048
     Dates: start: 20171113

REACTIONS (1)
  - Gout [Not Recovered/Not Resolved]

NARRATIVE: CASE EVENT DATE: 20171116
